FAERS Safety Report 9798668 (Version 3)
Quarter: 2014Q1

REPORT INFORMATION
  Report Type: Spontaneous
  Country: SE (occurrence: SE)
  Receive Date: 20140106
  Receipt Date: 20140228
  Transmission Date: 20141002
  Serious: Yes (Other)
  Sender: FDA-Public Use
  Company Number: PHHY2013SE140528

PATIENT
  Age: 10 Year
  Sex: Female
  Weight: 30 kg

DRUGS (4)
  1. LORATADIN HEXAL [Suspect]
     Indication: ALLERGY TO ANIMAL
     Dosage: 10 MG, UNK
     Route: 048
     Dates: start: 20131010, end: 20131129
  2. LORATADIN HEXAL [Suspect]
     Indication: SEASONAL ALLERGY
  3. LOMUNDAL [Concomitant]
  4. AVAMYS [Concomitant]

REACTIONS (6)
  - Feeling abnormal [Recovering/Resolving]
  - Abnormal behaviour [Recovering/Resolving]
  - Abdominal pain [Not Recovered/Not Resolved]
  - Anxiety [Not Recovered/Not Resolved]
  - Irritability [Not Recovered/Not Resolved]
  - Depressed mood [Not Recovered/Not Resolved]
